FAERS Safety Report 6515886-4 (Version None)
Quarter: 2009Q4

REPORT INFORMATION
  Report Type: 
  Country: None (occurrence: None)
  Receive Date: 20091223
  Receipt Date: 20091218
  Transmission Date: 20100525
  Serious: Yes (Other)
  Sender: FDA-Public Use
  Company Number: US-RB-027180-09

PATIENT
  Age: 69 Year
  Sex: Female

DRUGS (3)
  1. MUCINEX [Suspect]
     Dosage: UNKNOWN
     Route: 048
     Dates: start: 20091201
  2. MUCINEX FULL FORCE NASAL SPRAY [Suspect]
     Indication: INCREASED UPPER AIRWAY SECRETION
     Route: 045
     Dates: start: 20091201
  3. MUCINEX FULL FORCE NASAL SPRAY [Suspect]
     Indication: SINUS CONGESTION
     Route: 045
     Dates: start: 20091201

REACTIONS (1)
  - EPISTAXIS [None]
